FAERS Safety Report 22210245 (Version 1)
Quarter: 2023Q2

REPORT INFORMATION
  Report Type: Spontaneous
  Country: CH (occurrence: None)
  Receive Date: 20230414
  Receipt Date: 20230414
  Transmission Date: 20230722
  Serious: Yes (Other)
  Sender: FDA-Public Use
  Company Number: CH-ROCHE-3328767

PATIENT

DRUGS (1)
  1. HERCEPTIN [Suspect]
     Active Substance: TRASTUZUMAB
     Indication: Breast cancer
     Route: 041

REACTIONS (23)
  - Palmar-plantar erythrodysaesthesia syndrome [Unknown]
  - Burning sensation [Unknown]
  - Limb injury [Unknown]
  - Bone pain [Unknown]
  - Fatigue [Unknown]
  - Nail discolouration [Unknown]
  - Oral candidiasis [Unknown]
  - Lacrimation increased [Unknown]
  - Rhinorrhoea [Unknown]
  - Rash [Unknown]
  - Influenza like illness [Unknown]
  - Diarrhoea [Unknown]
  - Fatigue [Unknown]
  - Malaise [Unknown]
  - Back pain [Unknown]
  - Cardiac disorder [Unknown]
  - Flushing [Unknown]
  - Diarrhoea [Unknown]
  - Type 2 diabetes mellitus [Unknown]
  - Pain [Unknown]
  - Cough [Unknown]
  - Myalgia [Unknown]
  - Pain in extremity [Unknown]
